FAERS Safety Report 5330362-2 (Version None)
Quarter: 2007Q2

REPORT INFORMATION
  Report Type: 
  Country: None (occurrence: None)
  Receive Date: 20070521
  Receipt Date: 20070508
  Transmission Date: 20071010
  Serious: Yes (Other)
  Sender: FDA-Public Use
  Company Number: US-SHR-US-2007-006365

PATIENT
  Age: 64 Year
  Sex: Female
  Weight: 91 kg

DRUGS (37)
  1. MAGNEVIST [Suspect]
     Indication: ANGIOGRAM
     Dosage: 60 ML, 1 DOSE
     Route: 042
     Dates: start: 20030501, end: 20030501
  2. MAGNEVIST [Suspect]
     Dosage: 60 ML, 1 DOSE
     Route: 042
     Dates: start: 20040224, end: 20040224
  3. MAGNEVIST [Suspect]
     Dosage: 20 ML, 1 DOSE
     Route: 042
     Dates: start: 20050210, end: 20050210
  4. MAGNEVIST [Suspect]
     Dosage: 20 ML, 1 DOSE
     Route: 042
     Dates: start: 20050506, end: 20050506
  5. MAGNEVIST [Suspect]
     Dosage: UNK, 1 DOSE
     Route: 042
     Dates: start: 19940829, end: 19940829
  6. MAGNEVIST [Suspect]
     Dosage: UNK, 1 DOSE
     Route: 042
     Dates: start: 20050310, end: 20050310
  7. INSULIN [Concomitant]
     Dates: start: 19990101
  8. LOPRESSOR [Concomitant]
  9. COZAAR [Concomitant]
  10. NORVASC [Concomitant]
  11. ASPIRIN [Concomitant]
  12. CARDURA                                 /IRE/ [Concomitant]
  13. MICRONASE [Concomitant]
  14. LIPITOR [Concomitant]
  15. RENAGEL [Concomitant]
  16. NIFEREX [Concomitant]
  17. LASIX [Concomitant]
  18. CALTRATE PLUS [Concomitant]
  19. EPOGEN [Concomitant]
     Dosage: DURING DIALYSIS
     Dates: start: 20030108
  20. M.V.I. [Concomitant]
  21. PAXIL [Concomitant]
  22. PRILOSEC [Concomitant]
  23. NEPHROCAPS [Concomitant]
  24. NEXIUM [Concomitant]
  25. MANNITOL [Concomitant]
     Dosage: DURING DIALYSIS
     Dates: start: 20030101
  26. ZEMPLAR [Concomitant]
     Dosage: DURING DIALYSIS
     Route: 042
     Dates: start: 20030101
  27. GLIPIZIDE [Concomitant]
     Dosage: 5 MG, 2X/DAY
     Route: 048
     Dates: start: 20040226
  28. COUMADIN [Concomitant]
     Indication: ATRIAL FIBRILLATION
     Dates: start: 20040228
  29. CELLCEPT [Concomitant]
     Dosage: 1000 MG, 2X/DAY
     Route: 048
     Dates: start: 20041124
  30. PREDNISONE TAB [Concomitant]
     Dosage: 20 MG, 1X/DAY
     Route: 048
     Dates: start: 20041101
  31. VALCYTE [Concomitant]
     Dosage: 450 MG, 3X/WEEK
     Dates: start: 20041101
  32. PROGRAF [Concomitant]
     Dosage: 2 MG, 2X/DAY
     Route: 048
     Dates: start: 20041101
  33. RAPAMYCIN [Concomitant]
     Dosage: 2 MG, 1X/DAY
     Route: 048
     Dates: start: 20050503
  34. FRAGMIN [Concomitant]
     Dates: start: 20050511
  35. KEPPRA [Concomitant]
     Dosage: 625 MG, 2X/DAY
     Route: 048
     Dates: start: 20061003
  36. ZOCOR [Concomitant]
     Dosage: 40 MG, 1X/DAY
     Route: 048
     Dates: start: 20061003
  37. MAGNESIUM OXIDE [Concomitant]
     Dosage: 800 MG, 2X/DAY
     Route: 048
     Dates: start: 20061003

REACTIONS (1)
  - NEPHROGENIC FIBROSING DERMOPATHY [None]
